FAERS Safety Report 19190004 (Version 1)
Quarter: 2021Q2

REPORT INFORMATION
  Report Type: Spontaneous
  Country: US (occurrence: US)
  Receive Date: 20210428
  Receipt Date: 20210428
  Transmission Date: 20210717
  Serious: No
  Sender: FDA-Public Use
  Company Number: US-SA-2021SA137811

PATIENT
  Sex: Female

DRUGS (1)
  1. DUPIXENT [Suspect]
     Active Substance: DUPILUMAB
     Dosage: UNK
     Route: 065

REACTIONS (6)
  - Oral herpes [Recovered/Resolved]
  - Chest discomfort [Unknown]
  - Cough [Unknown]
  - Condition aggravated [Unknown]
  - Sinusitis [Recovering/Resolving]
  - Heart rate increased [Unknown]
